FAERS Safety Report 23593105 (Version 3)
Quarter: 2024Q2

REPORT INFORMATION
  Report Type: Spontaneous
  Country: US (occurrence: US)
  Receive Date: 20240304
  Receipt Date: 20240425
  Transmission Date: 20240716
  Serious: Yes (Life-Threatening, Hospitalization, Disabling, Other)
  Sender: FDA-Public Use
  Company Number: US-PFIZER INC-202400054310

PATIENT
  Age: 70 Year
  Sex: Male
  Weight: 122.47 kg

DRUGS (17)
  1. XELJANZ XR [Suspect]
     Active Substance: TOFACITINIB CITRATE
     Indication: Rheumatoid arthritis
     Dosage: UNK
  2. XELJANZ XR [Suspect]
     Active Substance: TOFACITINIB CITRATE
     Dosage: 11 MG, 1X/DAY
     Route: 048
     Dates: start: 201904, end: 20240215
  3. XELJANZ XR [Suspect]
     Active Substance: TOFACITINIB CITRATE
     Dosage: 11MG; ONCE A DAY
     Dates: start: 202402, end: 2024
  4. AMLODIPINE BESYLATE [Concomitant]
     Active Substance: AMLODIPINE BESYLATE
     Dosage: 10MG TABLET ONCE A DAY
  5. BUPROPION HYDROCHLORIDE XL [Concomitant]
     Active Substance: BUPROPION HYDROCHLORIDE
     Dosage: 300MG ONCE DAILY
  6. CLOPIDOGREL [Concomitant]
     Active Substance: CLOPIDOGREL BISULFATE
     Dosage: 75MG TABLET ONCE A DAY
  7. VITAMIN D3 [Concomitant]
     Active Substance: CHOLECALCIFEROL
     Indication: Vitamin D decreased
     Dosage: 125MCG/5000IU^S ONCE A DAY
  8. FOLIC ACID [Concomitant]
     Active Substance: FOLIC ACID
     Indication: Stomatitis
     Dosage: 800MCG ONCE A DAY
  9. LOSARTAN POTASSIUM [Concomitant]
     Active Substance: LOSARTAN POTASSIUM
     Indication: Blood pressure abnormal
     Dosage: 100MG ONCE A DAY
  10. MAGNESIUM [Concomitant]
     Active Substance: MAGNESIUM
     Indication: Muscle spasms
     Dosage: 400MG ONCE A DAY
  11. METHOTREXATE [Concomitant]
     Active Substance: METHOTREXATE
     Indication: Rheumatoid arthritis
     Dosage: TAKES 6 ONCE A WEEK
  12. METHOTREXATE [Concomitant]
     Active Substance: METHOTREXATE
     Dosage: 2.5 MG 4 PER WEEK
     Dates: start: 201507
  13. OXYBUTYNIN [Concomitant]
     Active Substance: OXYBUTYNIN\OXYBUTYNIN CHLORIDE
     Dosage: 5MG TABLET ONCE A DAY
  14. POTASSIUM [Concomitant]
     Active Substance: POTASSIUM
     Indication: Muscle spasms
     Dosage: UNK
  15. PREDNISONE [Concomitant]
     Active Substance: PREDNISONE
     Dosage: UNK
  16. ROSUVASTATIN CALCIUM [Concomitant]
     Active Substance: ROSUVASTATIN CALCIUM
     Indication: Blood cholesterol abnormal
     Dosage: 5MG TABLET ONCE A DAY
  17. TADALAFIL [Concomitant]
     Active Substance: TADALAFIL
     Indication: Prostatic disorder
     Dosage: 5MG ONCE DAILY

REACTIONS (3)
  - Cerebrovascular accident [Recovering/Resolving]
  - Haemorrhagic stroke [Unknown]
  - Visual field defect [Recovered/Resolved]

NARRATIVE: CASE EVENT DATE: 20231101
